FAERS Safety Report 5821659-8 (Version None)
Quarter: 2008Q3

REPORT INFORMATION
  Report Type: 
  Country: None (occurrence: None)
  Receive Date: 20080714
  Receipt Date: 20071101
  Transmission Date: 20090109
  Serious: Yes (Other)
  Sender: FDA-Public Use
  Company Number: 529207

PATIENT
  Age: 63 Year
  Sex: Female

DRUGS (5)
  1. BONIVA [Suspect]
     Indication: OSTEOPOROSIS
     Dosage: 150 MG
     Dates: start: 20040601
  2. LEVOXYL [Concomitant]
  3. VITAMIN NOS (VITAMIN NOS) [Concomitant]
  4. CALCIUM NOS (CALCIUM) [Concomitant]
  5. VITAMIN D (VITAMIN D NOS) [Concomitant]

REACTIONS (6)
  - CAROTID ARTERY OCCLUSION [None]
  - DIZZINESS [None]
  - EXPIRED DRUG ADMINISTERED [None]
  - GASTRITIS [None]
  - INTERVERTEBRAL DISC PROTRUSION [None]
  - NECK PAIN [None]
